FAERS Safety Report 5213196-9 (Version None)
Quarter: 2007Q1

REPORT INFORMATION
  Report Type: 
  Country: None (occurrence: None)
  Receive Date: 20070118
  Receipt Date: 20070118
  Transmission Date: 20070707
  Serious: No
  Sender: FDA-Public Use
  Company Number: None

PATIENT
  Sex: Female
  Weight: 46.7 kg

DRUGS (3)
  1. CISPLATIN [Suspect]
     Dosage: 69.7 MG
  2. DOXORUBICIN HYDROCHLORIDE [Suspect]
     Dosage: 62.7 MG
  3. G-CSF (FILGRASTIM, AMGEN) [Suspect]
     Dosage: 1150 MCG

REACTIONS (1)
  - NEUTROPENIA [None]
